FAERS Safety Report 7537608-0 (Version None)
Quarter: 2011Q2

REPORT INFORMATION
  Report Type: 
  Country: None (occurrence: None)
  Receive Date: 20110609
  Receipt Date: 20070815
  Transmission Date: 20111010
  Serious: Yes (Death, Hospitalization)
  Sender: FDA-Public Use
  Company Number: PHHO2006VE21319

PATIENT
  Sex: Male

DRUGS (4)
  1. DIOVAN HCT [Suspect]
     Indication: HYPERTENSION
     Dosage: 160 MG, UNK
     Route: 048
     Dates: start: 20051201, end: 20060802
  2. ASPIRIN [Concomitant]
  3. CORAZEM [Concomitant]
  4. ELANTAN [Concomitant]

REACTIONS (2)
  - MYOCARDIAL INFARCTION [None]
  - NEOPLASM MALIGNANT [None]
